FAERS Safety Report 5212973-8 (Version None)
Quarter: 2007Q1

REPORT INFORMATION
  Report Type: 
  Country: None (occurrence: None)
  Receive Date: 20070117
  Receipt Date: 20070103
  Transmission Date: 20070707
  Serious: Yes (Hospitalization)
  Sender: FDA-Public Use
  Company Number: 2006BI017682

PATIENT
  Sex: Female

DRUGS (1)
  1. NATALIZUMAB [Suspect]
     Indication: MULTIPLE SCLEROSIS
     Dosage: 300 MG;QM;IV
     Route: 042
     Dates: start: 20061114, end: 20061114

REACTIONS (10)
  - ADDISON'S DISEASE [None]
  - BLOOD CORTISOL ABNORMAL [None]
  - COMA [None]
  - CONDITION AGGRAVATED [None]
  - ENCEPHALOPATHY [None]
  - HYPOTHERMIA [None]
  - LYMPHOCYTE COUNT DECREASED [None]
  - MULTIPLE SCLEROSIS [None]
  - PNEUMONIA ASPIRATION [None]
  - UROSEPSIS [None]
